FAERS Safety Report 8547389-X (Version None)
Quarter: 2012Q3

REPORT INFORMATION
  Report Type: 
  Country: None (occurrence: None)
  Receive Date: 20120727
  Receipt Date: 20120409
  Transmission Date: 20120928
  Serious: No
  Sender: FDA-Public Use
  Company Number: US-ASTRAZENECA-2012SE23167

PATIENT
  Sex: Female
  Weight: 72.6 kg

DRUGS (3)
  1. SEROQUEL XR [Suspect]
     Indication: MAJOR DEPRESSION
     Route: 048
     Dates: start: 20110601
  2. SEROQUEL XR [Suspect]
     Indication: BIPOLAR DISORDER
     Route: 048
     Dates: start: 20110601
  3. XANAX [Concomitant]

REACTIONS (4)
  - MOBILITY DECREASED [None]
  - RHEUMATOID ARTHRITIS [None]
  - WEIGHT INCREASED [None]
  - FIBROMYALGIA [None]
